FAERS Safety Report 16055974 (Version 1)
Quarter: 2019Q2

REPORT INFORMATION
  Report Type: Spontaneous
  Country: US (occurrence: US)
  Receive Date: 20190308
  Receipt Date: 20190308
  Transmission Date: 20190711
  Serious: No
  Sender: FDA-Public Use
  Company Number: None

PATIENT

DRUGS (2)
  1. ZETIA [Suspect]
     Active Substance: EZETIMIBE
  2. FENOFIBRATE. [Suspect]
     Active Substance: FENOFIBRATE

REACTIONS (1)
  - Muscle injury [None]
